FAERS Safety Report 4395925-X (Version None)
Quarter: 2004Q3

REPORT INFORMATION
  Report Type: 
  Country: None (occurrence: None)
  Receive Date: 20040709
  Receipt Date: 20040624
  Transmission Date: 20050211
  Serious: No
  Sender: FDA-Public Use
  Company Number: 2003-06049

PATIENT
  Age: 41 Year
  Sex: Male
  Weight: 68.0396 kg

DRUGS (11)
  1. EMTRIVA [Suspect]
     Indication: ACQUIRED IMMUNODEFICIENCY SYNDROME
     Dosage: 200 MG, 1 IN 1 D, ORAL
     Route: 048
     Dates: start: 20030722
  2. VIREAD [Suspect]
     Indication: ACQUIRED IMMUNODEFICIENCY SYNDROME
     Dosage: 300 MG, 1 IN 1 D, ORAL
     Route: 048
     Dates: start: 20030318
  3. OXANDRIN [Concomitant]
  4. SUSTIVA [Concomitant]
  5. REYATAZ [Concomitant]
  6. PROPECIA [Concomitant]
  7. ASPIRIN [Concomitant]
  8. SINGULAIR [Concomitant]
  9. SEROSTIM (SOMATROPIN) (INJECTION) [Concomitant]
  10. TESTOSTERONE (TESTOSTERONE) (INJECTION) [Concomitant]
  11. DECA-DURABOLIN (NANDROLONE DECANOATE) (INJECTION) [Concomitant]

REACTIONS (4)
  - ABASIA [None]
  - DYSAESTHESIA [None]
  - HYPOAESTHESIA [None]
  - PARAESTHESIA [None]
